FAERS Safety Report 8153082-8 (Version None)
Quarter: 2012Q1

REPORT INFORMATION
  Report Type: 
  Country: None (occurrence: None)
  Receive Date: 20120221
  Receipt Date: 20120215
  Transmission Date: 20120608
  Serious: Yes (Life-Threatening, Hospitalization)
  Sender: FDA-Public Use
  Company Number: JP-ASTELLAS-2012US001652

PATIENT
  Sex: Female
  Weight: 39 kg

DRUGS (15)
  1. GEMCITABINE [Suspect]
     Indication: ADENOCARCINOMA PANCREAS
     Dosage: 1000 MG/M2, WEEKLY
     Route: 041
     Dates: start: 20111202, end: 20111215
  2. GEMCITABINE [Suspect]
     Dosage: 1000 MG/M2, WEEKLY
     Route: 041
     Dates: start: 20120105, end: 20120119
  3. DEXAMETHASONE SODIUM PHOSPHATE [Suspect]
     Dosage: 3.3 MG, UID/QD
     Route: 065
     Dates: start: 20120119, end: 20120119
  4. RABEPRAZOLE SODIUM [Concomitant]
     Indication: PRODUCT USED FOR UNKNOWN INDICATION
     Dosage: 10 MG, UID/QD
     Route: 048
     Dates: start: 20120112, end: 20120118
  5. OXINORM [Concomitant]
     Indication: PRODUCT USED FOR UNKNOWN INDICATION
     Dosage: 2.5 MG, UNKNOWN/D
     Route: 048
     Dates: start: 20120119
  6. ERLOTINIB HYDROCHLORIDE [Suspect]
     Indication: ADENOCARCINOMA PANCREAS
     Dosage: 100 MG, UID/QD
     Route: 048
     Dates: start: 20111202, end: 20120129
  7. LOXOPROFEN [Concomitant]
     Indication: PRODUCT USED FOR UNKNOWN INDICATION
     Dosage: 60 MG, TOTAL DOSE
     Route: 048
     Dates: start: 20111228, end: 20120118
  8. DEXAMETHASONE SODIUM PHOSPHATE [Suspect]
     Dosage: 3.3 MG, UID/QD
     Route: 065
     Dates: start: 20111208, end: 20111208
  9. DEXAMETHASONE SODIUM PHOSPHATE [Suspect]
     Dosage: 3.3 MG, UID/QD
     Route: 065
     Dates: start: 20120112, end: 20120112
  10. SITAGLIPTIN PHOSPHATE [Concomitant]
     Indication: PANCREATIC CARCINOMA
     Dosage: 50 MG, UID/QD
     Route: 048
  11. DEXAMETHASONE SODIUM PHOSPHATE [Suspect]
     Indication: PRODUCT USED FOR UNKNOWN INDICATION
     Dosage: 3.3 MG, UID/QD
     Route: 065
     Dates: start: 20111202, end: 20111202
  12. LOXOPROFEN [Concomitant]
     Dosage: 180 MG, UID/QD
     Route: 048
     Dates: start: 20120119
  13. DEXAMETHASONE SODIUM PHOSPHATE [Suspect]
     Dosage: 3.3 MG, UID/QD
     Route: 065
     Dates: start: 20111215, end: 20111215
  14. DEXAMETHASONE SODIUM PHOSPHATE [Suspect]
     Dosage: 3.3 MG, UID/QD
     Route: 065
     Dates: start: 20120105, end: 20120105
  15. FAMOTIDINE [Concomitant]
     Indication: PRODUCT USED FOR UNKNOWN INDICATION
     Dosage: 20 MG, UID/QD
     Route: 048
     Dates: start: 20120119

REACTIONS (11)
  - NAUSEA [None]
  - DRY SKIN [None]
  - HYPERGLYCAEMIA [None]
  - FATIGUE [None]
  - DECREASED APPETITE [None]
  - DIARRHOEA [None]
  - ANAEMIA [None]
  - STOMATITIS [None]
  - PNEUMOCYSTIS JIROVECI PNEUMONIA [None]
  - DERMATITIS ACNEIFORM [None]
  - PARONYCHIA [None]
